FAERS Safety Report 13712990 (Version 1)
Quarter: 2017Q3

REPORT INFORMATION
  Report Type: Spontaneous
  Country: US (occurrence: US)
  Receive Date: 20170704
  Receipt Date: 20170704
  Transmission Date: 20171127
  Serious: Yes (Disabling)
  Sender: FDA-Public Use
  Company Number: PHEH2017US019629

PATIENT
  Age: 65 Year
  Sex: Male

DRUGS (1)
  1. ENTRESTO [Suspect]
     Active Substance: SACUBITRIL\VALSARTAN
     Indication: PRODUCT USED FOR UNKNOWN INDICATION
     Dosage: 50 MG, BID
     Route: 048
     Dates: start: 20170601, end: 20170613

REACTIONS (5)
  - Chest pain [Unknown]
  - Fatigue [Unknown]
  - Dyspnoea [Unknown]
  - Swelling face [Unknown]
  - Oedema [Unknown]

NARRATIVE: CASE EVENT DATE: 20170601
